FAERS Safety Report 20082773 (Version 1)
Quarter: 2021Q4

REPORT INFORMATION
  Report Type: Spontaneous
  Country: PL (occurrence: PL)
  Receive Date: 20211117
  Receipt Date: 20211117
  Transmission Date: 20220304
  Serious: Yes (Life-Threatening)
  Sender: FDA-Public Use
  Company Number: None

PATIENT
  Age: 28 Year
  Sex: Male
  Weight: 95 kg

DRUGS (4)
  1. PREGABALIN [Suspect]
     Active Substance: PREGABALIN
     Dosage: 12600 MG(STRENGTH: 150MG, 84 TABLETS)
     Dates: start: 20210216, end: 20210216
  2. PERAZINE DIMALONATE [Suspect]
     Active Substance: PERAZINE DIMALONATE
     Dosage: 3000 MG((STRENGTH: 100MG, AT 30 TABLETS )
     Dates: start: 20210216, end: 20210216
  3. OLANZAPINE [Suspect]
     Active Substance: OLANZAPINE
     Dosage: 140 MG(STRENGTH: 5 MG, AT 28 TABLETS
     Dates: start: 20210216, end: 20210216
  4. MIRTAZAPINE [Suspect]
     Active Substance: MIRTAZAPINE
     Dosage: 900 MG(STRENGTH: 15 MG, AT 60 TABLETS)
     Dates: start: 20210216, end: 20210216

REACTIONS (5)
  - Overdose [Unknown]
  - Drug abuse [Unknown]
  - Suicide attempt [Unknown]
  - Loss of consciousness [Unknown]
  - Seizure [Unknown]

NARRATIVE: CASE EVENT DATE: 20210216
